FAERS Safety Report 7631618-0 (Version None)
Quarter: 2011Q3

REPORT INFORMATION
  Report Type: 
  Country: None (occurrence: None)
  Receive Date: 20110725
  Receipt Date: 20110124
  Transmission Date: 20111222
  Serious: No
  Sender: FDA-Public Use
  Company Number: US-BRISTOL-MYERS SQUIBB COMPANY-15505837

PATIENT
  Age: 78 Year
  Sex: Male

DRUGS (2)
  1. COUMADIN [Suspect]
     Dosage: 1 DF: 5MG 3 DAYS A WEEK; 2.5 MG 4 DAYS A WEEK FOR SEVERAL YEARS
  2. FLECAINIDE ACETATE [Concomitant]

REACTIONS (2)
  - EPISTAXIS [None]
  - RASH [None]
